FAERS Safety Report 12767167 (Version 1)
Quarter: 2016Q3

REPORT INFORMATION
  Report Type: Spontaneous
  Country: US (occurrence: US)
  Receive Date: 20160915
  Receipt Date: 20160915
  Transmission Date: 20161109
  Serious: No
  Sender: FDA-Public Use
  Company Number: None

PATIENT
  Sex: Female

DRUGS (3)
  1. IMATINIB 400 MG SUN PHARMACEUTICALS [Suspect]
     Active Substance: IMATINIB
     Indication: NEOPLASM MALIGNANT
     Route: 048
     Dates: start: 20160325
  2. IMATINIB 400 MG SUN PHARMACEUTICALS [Suspect]
     Active Substance: IMATINIB
     Indication: MALIGNANT CONNECTIVE TISSUE NEOPLASM
     Route: 048
     Dates: start: 20160325
  3. IMATINIB 400 MG SUN PHARMACEUTICALS [Suspect]
     Active Substance: IMATINIB
     Indication: SOFT TISSUE SARCOMA
     Route: 048
     Dates: start: 20160325

REACTIONS (3)
  - Anosmia [None]
  - Dysgeusia [None]
  - Alopecia [None]
